FAERS Safety Report 7177957-1 (Version None)
Quarter: 2010Q4

REPORT INFORMATION
  Report Type: 
  Country: None (occurrence: None)
  Receive Date: 20101208
  Receipt Date: 20090601
  Transmission Date: 20110411
  Serious: Yes (Death)
  Sender: FDA-Public Use
  Company Number: UTC-002689

PATIENT

DRUGS (1)
  1. REMODULIN (INJECTION FOR INFUSION) (TREPROSTINIL SODIUM) [Suspect]
     Dosage: INTRAVENOUS
     Route: 042
     Dates: start: 20071001, end: 20090601

REACTIONS (1)
  - DEATH [None]
